FAERS Safety Report 12643356 (Version 1)
Quarter: 2016Q3

REPORT INFORMATION
  Report Type: Spontaneous
  Country: IT (occurrence: IT)
  Receive Date: 20160811
  Receipt Date: 20160811
  Transmission Date: 20161109
  Serious: Yes (Hospitalization)
  Sender: FDA-Public Use
  Company Number: IT-SUN PHARMACEUTICAL INDUSTRIES LTD-2016RR-121487

PATIENT
  Age: 26 Year
  Sex: Male
  Weight: 80 kg

DRUGS (4)
  1. FINASTERIDE. [Suspect]
     Active Substance: FINASTERIDE
     Indication: ANDROGENETIC ALOPECIA
     Dosage: 1 MG DAILY
     Route: 048
  2. PROGESTERONE. [Suspect]
     Active Substance: PROGESTERONE
     Indication: ANDROGENETIC ALOPECIA
     Dosage: 1 % CYCLICAL
     Route: 061
     Dates: start: 20151101, end: 20160525
  3. MINOXIDIL. [Suspect]
     Active Substance: MINOXIDIL
     Indication: ANDROGENETIC ALOPECIA
     Dosage: 5 % CYCLICAL
     Route: 061
     Dates: start: 20151101, end: 20160525
  4. 17-ALFA ESTRADIOLO [Suspect]
     Active Substance: ALFATRADIOL
     Indication: ANDROGENETIC ALOPECIA
     Dosage: .02 % CYCLICAL
     Route: 061
     Dates: start: 20151101, end: 20160525

REACTIONS (1)
  - Cerebral infarction [Recovered/Resolved with Sequelae]

NARRATIVE: CASE EVENT DATE: 20160525
